FAERS Safety Report 16271923 (Version 1)
Quarter: 2019Q2

REPORT INFORMATION
  Report Type: Spontaneous
  Country: US (occurrence: US)
  Receive Date: 20190503
  Receipt Date: 20190503
  Transmission Date: 20190711
  Serious: Yes (Other)
  Sender: FDA-Public Use
  Company Number: US-NOVOPROD-660281

PATIENT
  Age: 83 Year
  Sex: Female
  Weight: 101.59 kg

DRUGS (2)
  1. NOVOLOG [Suspect]
     Active Substance: INSULIN ASPART
     Indication: TYPE 2 DIABETES MELLITUS
     Dosage: 31 IU, QD (15 UNITS IN THE MORNING, 6 UNITS AT LUNCH, AND THEN 10 UNITS)
     Route: 058
  2. TRESIBA [Suspect]
     Active Substance: INSULIN DEGLUDEC
     Indication: TYPE 2 DIABETES MELLITUS
     Dosage: 40 IU, QD
     Route: 058

REACTIONS (6)
  - Blindness unilateral [Not Recovered/Not Resolved]
  - Neuropathy peripheral [Recovering/Resolving]
  - Weight increased [Not Recovered/Not Resolved]
  - Hypoglycaemic coma [Recovered/Resolved]
  - Glycosylated haemoglobin increased [Not Recovered/Not Resolved]
  - Blood glucose fluctuation [Not Recovered/Not Resolved]

NARRATIVE: CASE EVENT DATE: 2018
